FAERS Safety Report 18521631 (Version 1)
Quarter: 2020Q4

REPORT INFORMATION
  Report Type: Spontaneous
  Country: US (occurrence: US)
  Receive Date: 20201118
  Receipt Date: 20201118
  Transmission Date: 20210114
  Serious: Yes (Hospitalization)
  Sender: FDA-Public Use
  Company Number: None

PATIENT
  Sex: Female

DRUGS (1)
  1. GILENYA [Suspect]
     Active Substance: FINGOLIMOD HYDROCHLORIDE
     Indication: MULTIPLE SCLEROSIS
     Route: 048
     Dates: start: 201203

REACTIONS (8)
  - Blood blister [None]
  - Asthenia [None]
  - Sensory loss [None]
  - Transient ischaemic attack [None]
  - Ingrowing nail [None]
  - Vulval cancer [None]
  - Limb injury [None]
  - Alopecia [None]
